FAERS Safety Report 12690066 (Version 1)
Quarter: 2016Q3

REPORT INFORMATION
  Report Type: Spontaneous
  Country: CA (occurrence: CA)
  Receive Date: 20160826
  Receipt Date: 20160826
  Transmission Date: 20161109
  Serious: Yes (Other)
  Sender: FDA-Public Use
  Company Number: CA-AMGEN-CANSP2016108107

PATIENT
  Age: 51 Year
  Sex: Male

DRUGS (26)
  1. NIFEDIPINE. [Suspect]
     Active Substance: NIFEDIPINE
     Indication: PRODUCT USED FOR UNKNOWN INDICATION
     Dosage: 30 MG, QD
     Route: 065
  2. TACROLIMUS. [Suspect]
     Active Substance: TACROLIMUS
     Indication: PRODUCT USED FOR UNKNOWN INDICATION
     Dosage: 1 MG, BID
     Route: 065
  3. TACROLIMUS. [Suspect]
     Active Substance: TACROLIMUS
     Dosage: 2 MG, BID
     Route: 065
  4. AMITRIPTYLINE [Concomitant]
     Active Substance: AMITRIPTYLINE
     Dosage: UNK
  5. GABAPENTIN. [Concomitant]
     Active Substance: GABAPENTIN
     Dosage: UNK
  6. LEFLUNOMIDE. [Concomitant]
     Active Substance: LEFLUNOMIDE
     Dosage: UNK
  7. RABEPRAZOLE [Concomitant]
     Active Substance: RABEPRAZOLE
     Dosage: UNK
  8. SPIRONOLACTONE. [Concomitant]
     Active Substance: SPIRONOLACTONE
     Dosage: UNK
  9. VITAMIN B12 [Concomitant]
     Active Substance: CYANOCOBALAMIN
     Dosage: UNK
  10. ASA [Concomitant]
     Active Substance: ASPIRIN
     Dosage: UNK
  11. CARVEDILOL. [Concomitant]
     Active Substance: CARVEDILOL
     Dosage: UNK
  12. VALPROATE SEMISODIUM [Concomitant]
     Active Substance: DIVALPROEX SODIUM
     Dosage: UNK
  13. ENBREL [Suspect]
     Active Substance: ETANERCEPT
     Indication: RHEUMATOID ARTHRITIS
     Dosage: 50 MG, QWK
     Route: 058
  14. DEQUALINIUM [Concomitant]
     Active Substance: DEQUALINIUM
     Dosage: UNK
  15. FOSAVANCE [Concomitant]
     Active Substance: ALENDRONATE SODIUM\CHOLECALCIFEROL
     Dosage: UNK
  16. INFLIXIMAB [Concomitant]
     Active Substance: INFLIXIMAB
     Dosage: UNK
  17. PROGRAF [Concomitant]
     Active Substance: TACROLIMUS\TACROLIMUS ANHYDROUS
     Dosage: UNK
  18. VENLAFAXINE [Concomitant]
     Active Substance: VENLAFAXINE HYDROCHLORIDE
     Dosage: UNK
  19. CICLOSPORIN [Suspect]
     Active Substance: CYCLOSPORINE
     Indication: PRODUCT USED FOR UNKNOWN INDICATION
     Dosage: UNK
     Route: 065
  20. EZETROL [Concomitant]
     Active Substance: EZETIMIBE
     Dosage: UNK
  21. PREDNISONE. [Suspect]
     Active Substance: PREDNISONE
     Indication: PRODUCT USED FOR UNKNOWN INDICATION
     Dosage: 5 MG, QD
     Route: 065
  22. ALENDRONATE SODIUM. [Concomitant]
     Active Substance: ALENDRONATE SODIUM
     Dosage: UNK
  23. ARAVA [Concomitant]
     Active Substance: LEFLUNOMIDE
     Dosage: UNK
  24. RAMIPRIL. [Concomitant]
     Active Substance: RAMIPRIL
     Dosage: UNK
  25. CRESTOR [Concomitant]
     Active Substance: ROSUVASTATIN CALCIUM
     Dosage: UNK
  26. EFFEXOR [Concomitant]
     Active Substance: VENLAFAXINE HYDROCHLORIDE
     Dosage: UNK

REACTIONS (36)
  - Gastrooesophageal reflux disease [Recovered/Resolved]
  - Kyphosis [Recovered/Resolved]
  - Scleroderma [Recovered/Resolved]
  - Onychomycosis [Recovered/Resolved]
  - Cardiac failure congestive [Recovered/Resolved]
  - Muscular weakness [Recovered/Resolved]
  - Arrhythmia [Recovered/Resolved]
  - Arthritis [Recovered/Resolved]
  - Gait disturbance [Recovered/Resolved]
  - Infusion related reaction [Recovered/Resolved]
  - Scoliosis [Recovered/Resolved]
  - Antinuclear antibody positive [Recovered/Resolved]
  - Dyspnoea [Recovered/Resolved]
  - Skin hypertrophy [Recovered/Resolved]
  - Cardiomyopathy [Recovered/Resolved]
  - Vertebral foraminal stenosis [Recovered/Resolved]
  - Depression [Recovered/Resolved]
  - Dry eye [Recovered/Resolved]
  - Hypoaesthesia [Recovered/Resolved]
  - Left ventricular dysfunction [Recovered/Resolved]
  - Mixed connective tissue disease [Recovered/Resolved]
  - Pain of skin [Recovered/Resolved]
  - Raynaud^s phenomenon [Recovered/Resolved]
  - Renal impairment [Recovered/Resolved]
  - Wound complication [Recovered/Resolved]
  - Sclerodactylia [Recovered/Resolved]
  - Skin ulcer [Recovered/Resolved]
  - Telangiectasia [Recovered/Resolved]
  - Tenderness [Recovered/Resolved]
  - Back pain [Recovered/Resolved]
  - Blood creatinine increased [Recovered/Resolved]
  - Dry mouth [Recovered/Resolved]
  - Impaired healing [Recovered/Resolved]
  - Onycholysis [Recovered/Resolved]
  - Osteoarthritis [Recovered/Resolved]
  - Scar [Recovered/Resolved]
